FAERS Safety Report 21337243 (Version 2)
Quarter: 2022Q4

REPORT INFORMATION
  Report Type: Other
  Country: US (occurrence: None)
  Receive Date: 20220915
  Receipt Date: 20221017
  Transmission Date: 20230113
  Serious: Yes (Death, Hospitalization, Other)
  Sender: FDA-Public Use
  Company Number: US-ROCHE-2984026

PATIENT
  Sex: Male

DRUGS (6)
  1. VALCYTE [Suspect]
     Active Substance: VALGANCICLOVIR HYDROCHLORIDE
     Indication: Cytomegalovirus infection
     Route: 048
  2. LETROZOLE [Concomitant]
     Active Substance: LETROZOLE
  3. BRENTUXIMAB [Concomitant]
     Active Substance: BRENTUXIMAB
  4. DUVELISIB [Concomitant]
     Active Substance: DUVELISIB
  5. ELIQUIS [Concomitant]
     Active Substance: APIXABAN
  6. ATENOLOL [Concomitant]
     Active Substance: ATENOLOL

REACTIONS (14)
  - Off label use [Unknown]
  - Aspiration [Fatal]
  - Cardiac arrest [Fatal]
  - Atrial fibrillation [Recovered/Resolved]
  - Diarrhoea [Not Recovered/Not Resolved]
  - Incontinence [Not Recovered/Not Resolved]
  - Abdominal discomfort [Not Recovered/Not Resolved]
  - Nausea [Not Recovered/Not Resolved]
  - Haematochezia [Not Recovered/Not Resolved]
  - Bicytopenia [Not Recovered/Not Resolved]
  - Bacteraemia [Not Recovered/Not Resolved]
  - Hypotension [Not Recovered/Not Resolved]
  - Total lung capacity decreased [Unknown]
  - Ileus [Unknown]
